FAERS Safety Report 26107244 (Version 1)
Quarter: 2025Q4

REPORT INFORMATION
  Report Type: Spontaneous
  Country: US (occurrence: US)
  Receive Date: 20251201
  Receipt Date: 20251201
  Transmission Date: 20260118
  Serious: No
  Sender: ROCHE
  Company Number: US-ROCHE-10000445555

PATIENT
  Sex: Female

DRUGS (1)
  1. ACTEMRA ACTPEN [Suspect]
     Active Substance: TOCILIZUMAB
     Indication: Rheumatoid arthritis
     Route: 058
     Dates: start: 202404

REACTIONS (6)
  - Lip swelling [Unknown]
  - Pruritus [Unknown]
  - Dry mouth [Unknown]
  - Dysphagia [Unknown]
  - Dry throat [Unknown]
  - Peripheral swelling [Unknown]
